FAERS Safety Report 25409093 (Version 1)
Quarter: 2025Q2

REPORT INFORMATION
  Report Type: Spontaneous
  Country: US (occurrence: US)
  Receive Date: 20250607
  Receipt Date: 20250607
  Transmission Date: 20250716
  Serious: No
  Sender: RIGEL PHARMACEUTICALS
  Company Number: US-RIGEL Pharmaceuticals INC-20241000204

PATIENT
  Sex: Female

DRUGS (5)
  1. TAVALISSE [Suspect]
     Active Substance: FOSTAMATINIB
     Indication: Immune thrombocytopenia
     Dosage: 100 MG, BID
     Route: 048
     Dates: start: 20241018
  2. HONEY [Concomitant]
     Active Substance: HONEY
     Indication: Product used for unknown indication
  3. ELDERBERRY [RUBUS IDAEUS LEAF;SAMBUCUS NIGRA FLOWER;SAMBUCUS NIGRA FRU [Concomitant]
     Indication: Product used for unknown indication
  4. ASCORBIC ACID\HERBALS\MORINGA OLEIFERA LEAF [Concomitant]
     Active Substance: ASCORBIC ACID\HERBALS\MORINGA OLEIFERA LEAF
     Indication: Product used for unknown indication
  5. VITAMINS NOS [Concomitant]
     Active Substance: VITAMINS
     Indication: Product used for unknown indication

REACTIONS (8)
  - Contusion [Unknown]
  - Dry skin [Unknown]
  - Product dose omission issue [Unknown]
  - Euphoric mood [Unknown]
  - Platelet count decreased [Recovering/Resolving]
  - Weight increased [Unknown]
  - Anxiety [Unknown]
  - Platelet count [Unknown]

NARRATIVE: CASE EVENT DATE: 20240101
